FAERS Safety Report 13349424 (Version 2)
Quarter: 2017Q1

REPORT INFORMATION
  Report Type: Report from Study
  Country: US (occurrence: US)
  Receive Date: 20170320
  Receipt Date: 20170323
  Transmission Date: 20170428
  Serious: Yes (Hospitalization, Other)
  Sender: FDA-Public Use
  Company Number: US-ROCHE-1907813

PATIENT
  Age: 86 Year
  Sex: Female
  Weight: 44.04 kg

DRUGS (3)
  1. RITUXAN [Suspect]
     Active Substance: RITUXIMAB
     Route: 042
     Dates: start: 2016
  2. RITUXAN [Suspect]
     Active Substance: RITUXIMAB
     Dosage: LAST INJECTION: FEB/2017
     Route: 042
  3. RITUXAN [Suspect]
     Active Substance: RITUXIMAB
     Indication: WALDENSTROM^S MACROGLOBULINAEMIA
     Route: 042
     Dates: start: 2009, end: 2013

REACTIONS (4)
  - Blindness [Unknown]
  - Feeling abnormal [Unknown]
  - Myocardial infarction [Recovered/Resolved]
  - Disorientation [Unknown]

NARRATIVE: CASE EVENT DATE: 20170301
